FAERS Safety Report 13328589 (Version 1)
Quarter: 2017Q1

REPORT INFORMATION
  Report Type: Spontaneous
  Country: US (occurrence: US)
  Receive Date: 20170310
  Receipt Date: 20170310
  Transmission Date: 20170428
  Serious: Yes (Hospitalization)
  Sender: FDA-Public Use
  Company Number: None

PATIENT
  Age: 52 Year
  Sex: Male

DRUGS (2)
  1. TESTOPEL [Suspect]
     Active Substance: TESTOSTERONE
     Indication: TESTICULAR FAILURE
     Dosage: MD TO ADMINISTER
     Dates: start: 20161025
  2. HYDROC/APAP [Concomitant]

REACTIONS (1)
  - Coronary arterial stent insertion [None]

NARRATIVE: CASE EVENT DATE: 2017
